FAERS Safety Report 9964001 (Version 4)
Quarter: 2014Q2

REPORT INFORMATION
  Report Type: Spontaneous
  Country: US (occurrence: US)
  Receive Date: 20140305
  Receipt Date: 20140407
  Transmission Date: 20141212
  Serious: Yes (Hospitalization)
  Sender: FDA-Public Use
  Company Number: US-ACTELION-A-US2014-95471

PATIENT
  Age: 62 Year
  Sex: Female

DRUGS (3)
  1. TRACLEER [Suspect]
     Indication: PULMONARY ARTERIAL HYPERTENSION
     Dosage: 125 MG, BID
     Route: 048
     Dates: start: 20081119
  2. TRACLEER [Suspect]
     Dosage: 62.5 MG, BID
     Route: 048
     Dates: start: 20080714, end: 20081118
  3. TRACLEER [Suspect]
     Dosage: UNK
     Route: 048
     Dates: start: 20070404

REACTIONS (3)
  - Hip fracture [Recovering/Resolving]
  - Transplant evaluation [Recovering/Resolving]
  - Fall [Recovering/Resolving]
